FAERS Safety Report 10962091 (Version 6)
Quarter: 2015Q3

REPORT INFORMATION
  Report Type: Spontaneous
  Country: US (occurrence: US)
  Receive Date: 20150327
  Receipt Date: 20150729
  Transmission Date: 20151125
  Serious: No
  Sender: FDA-Public Use
  Company Number: US-PFIZER INC-2015090853

PATIENT
  Age: 83 Year
  Sex: Female

DRUGS (23)
  1. GLIPIZIDE. [Suspect]
     Active Substance: GLIPIZIDE
     Indication: BLOOD GLUCOSE ABNORMAL
  2. GLIPIZIDE. [Suspect]
     Active Substance: GLIPIZIDE
     Indication: TYPE 2 DIABETES MELLITUS
     Dosage: 5 MG, TWICE DAILY
     Dates: start: 2005
  3. ASPIRIN. [Suspect]
     Active Substance: ASPIRIN
     Dosage: UNK
  4. COREG [Concomitant]
     Active Substance: CARVEDILOL
     Dosage: 6.25 MG, 2X/DAY
  5. PLAVIX [Concomitant]
     Active Substance: CLOPIDOGREL BISULFATE
     Dosage: 75 MG, UNK (AM)
     Route: 048
  6. TRICOR [Concomitant]
     Active Substance: FENOFIBRATE
     Dosage: 145 MG, UNK (AM)
     Route: 048
  7. LIPITOR [Suspect]
     Active Substance: ATORVASTATIN CALCIUM
     Dosage: 20 MG, (AT NIGHT)
     Dates: start: 1990, end: 201406
  8. MOBIC [Concomitant]
     Active Substance: MELOXICAM
     Dosage: 7.5 MG, UNK (AM)
     Route: 048
     Dates: start: 2015
  9. PREMARIN [Concomitant]
     Active Substance: ESTROGENS, CONJUGATED
     Dosage: 0.3 MG, UNK (AM)
     Route: 048
  10. COLCRYS [Suspect]
     Active Substance: COLCHICINE
     Indication: GOUT
     Dosage: 0.6 MG, AS NEEDED
     Route: 048
     Dates: start: 2013
  11. COLCRYS [Suspect]
     Active Substance: COLCHICINE
     Indication: GOUT
  12. COZAAR [Suspect]
     Active Substance: LOSARTAN POTASSIUM
     Indication: CHRONIC KIDNEY DISEASE
     Dosage: 25 MG, ONCE DAILY
     Dates: start: 2005
  13. COZAAR [Suspect]
     Active Substance: LOSARTAN POTASSIUM
     Indication: BLOOD PRESSURE ABNORMAL
  14. REGLAN [Concomitant]
     Active Substance: METOCLOPRAMIDE HYDROCHLORIDE
     Dosage: 10 MG, 2X/DAY
     Route: 048
     Dates: start: 20150112, end: 20150123
  15. SYNTHROID [Suspect]
     Active Substance: LEVOTHYROXINE SODIUM
     Indication: HYPOTHYROIDISM
     Dosage: 0.05 MG, 1X/DAY
  16. DIPYRIDAMOLE. [Concomitant]
     Active Substance: DIPYRIDAMOLE
     Dosage: 50 MG, 2X/DAY
     Route: 048
  17. GLIPIZIDE XL [Concomitant]
     Active Substance: GLIPIZIDE
     Dosage: 5 MG, UNK (AM)
     Route: 048
     Dates: start: 20150112, end: 20150123
  18. LIPITOR [Suspect]
     Active Substance: ATORVASTATIN CALCIUM
     Indication: HYPERCHOLESTEROLAEMIA
     Dosage: 40 MG, UNK
  19. COREG [Concomitant]
     Active Substance: CARVEDILOL
     Indication: HYPERTENSION
     Dosage: 6.25 MG, AS NEEDED
  20. LOSARTAN. [Concomitant]
     Active Substance: LOSARTAN
     Dosage: UNK
     Dates: start: 2005
  21. ACETAMINOPHEN AND CODEINE [Concomitant]
     Active Substance: ACETAMINOPHEN\CODEINE PHOSPHATE
     Indication: PAIN
     Dosage: 600 MG, 2X/DAY
     Route: 048
     Dates: start: 20150112, end: 20150123
  22. LOVASTATIN. [Concomitant]
     Active Substance: LOVASTATIN
     Dosage: 40 MG, UNK (BEDTIME)
     Route: 048
     Dates: start: 2014
  23. LASIX [Concomitant]
     Active Substance: FUROSEMIDE
     Dosage: 20 MG, 2X/DAY
     Route: 048

REACTIONS (3)
  - Chest pain [Unknown]
  - Drug hypersensitivity [Unknown]
  - Dyspnoea [Unknown]
